FAERS Safety Report 11118471 (Version 1)
Quarter: 2015Q2

REPORT INFORMATION
  Report Type: Spontaneous
  Country: IN (occurrence: IN)
  Receive Date: 20150518
  Receipt Date: 20150518
  Transmission Date: 20150821
  Serious: Yes (Life-Threatening, Hospitalization)
  Sender: FDA-Public Use
  Company Number: IN-MYLANLABS-2015M1015933

PATIENT

DRUGS (4)
  1. FENTANYL. [Suspect]
     Active Substance: FENTANYL
     Indication: ANAESTHESIA
     Dosage: 50MICROG; (0.83MICROG/KG, IN DILUTION OF 1 ML = 50MICROG)
     Route: 042
  2. TRAMADOL [Interacting]
     Active Substance: TRAMADOL
     Indication: ANALGESIC THERAPY
     Dosage: 75 MG; (1.25 MG/KG, IN DILUTION OF 1 ML = 20 MG) ADMINISTERED SLOWLY OVER 2-3 MINUTES
     Route: 042
  3. GABAPENTIN. [Concomitant]
     Active Substance: GABAPENTIN
     Indication: RADICULAR PAIN
     Dosage: SINCE 1 MONTH
     Route: 065
  4. IBUPROFEN. [Concomitant]
     Active Substance: IBUPROFEN
     Indication: RADICULAR PAIN
     Dosage: SINCE 1 MONTH
     Route: 065

REACTIONS (4)
  - Drug interaction [Recovered/Resolved]
  - Ventricular tachycardia [Recovered/Resolved]
  - Ventricular fibrillation [Recovered/Resolved]
  - Serotonin syndrome [Recovered/Resolved]
